FAERS Safety Report 15403611 (Version 2)
Quarter: 2019Q2

REPORT INFORMATION
  Report Type: Spontaneous
  Country: US (occurrence: US)
  Receive Date: 20180919
  Receipt Date: 20190614
  Transmission Date: 20190711
  Serious: Yes (Hospitalization)
  Sender: FDA-Public Use
  Company Number: US-VERTEX PHARMACEUTICALS-2018-006620

PATIENT
  Age: 15 Year
  Sex: Male

DRUGS (3)
  1. SYMDEKO [Suspect]
     Active Substance: IVACAFTOR\TEZACAFTOR
     Indication: CYSTIC FIBROSIS
     Dosage: 100MG TEZACAFTOR/150MG IVACAFTOR AM; 150MG IVACAFTOR PM
     Route: 048
     Dates: start: 20180717
  2. PULMOZYME [Concomitant]
     Active Substance: DORNASE ALFA
  3. OMNITROPE [Concomitant]
     Active Substance: SOMATROPIN

REACTIONS (1)
  - Sinus disorder [Recovered/Resolved]

NARRATIVE: CASE EVENT DATE: 20180828
